FAERS Safety Report 24078378 (Version 1)
Quarter: 2024Q3

REPORT INFORMATION
  Report Type: Spontaneous
  Country: IL (occurrence: IL)
  Receive Date: 20240711
  Receipt Date: 20240711
  Transmission Date: 20241016
  Serious: Yes (Hospitalization)
  Sender: ASTELLAS
  Company Number: IL-ROCHE-10000013042

PATIENT
  Age: 65 Year
  Sex: Male

DRUGS (13)
  1. TARCEVA [Suspect]
     Active Substance: ERLOTINIB HYDROCHLORIDE
     Indication: Diabetes mellitus
     Dosage: UNK UNK, UNKNOWN FREQ.
     Route: 048
  2. TARCEVA [Suspect]
     Active Substance: ERLOTINIB HYDROCHLORIDE
     Indication: Hepatic cancer
  3. TARCEVA [Suspect]
     Active Substance: ERLOTINIB HYDROCHLORIDE
     Indication: Hypertension
  4. TARCEVA [Suspect]
     Active Substance: ERLOTINIB HYDROCHLORIDE
     Indication: Insomnia
  5. SORAFENIB [Suspect]
     Active Substance: SORAFENIB
     Indication: Insomnia
     Dosage: UNK UNK, UNKNOWN FREQ.
     Route: 065
  6. SORAFENIB [Suspect]
     Active Substance: SORAFENIB
     Indication: Hypertension
  7. SORAFENIB [Suspect]
     Active Substance: SORAFENIB
     Indication: Hepatic cancer
  8. SORAFENIB [Suspect]
     Active Substance: SORAFENIB
     Indication: Diabetes mellitus
  9. CARTIA XT [Concomitant]
     Active Substance: DILTIAZEM HYDROCHLORIDE
     Indication: Product used for unknown indication
     Dosage: UNK UNK, UNKNOWN FREQ.
     Route: 065
  10. ATENOLOL [Concomitant]
     Active Substance: ATENOLOL
     Indication: Product used for unknown indication
     Dosage: UNK UNK, UNKNOWN FREQ.
     Route: 065
  11. COZAAR [Concomitant]
     Active Substance: LOSARTAN POTASSIUM
     Indication: Product used for unknown indication
     Dosage: UNK UNK, UNKNOWN FREQ.
     Route: 065
  12. LANTUS [Concomitant]
     Active Substance: INSULIN GLARGINE
     Indication: Product used for unknown indication
     Dosage: UNK UNK, UNKNOWN FREQ.
     Route: 065
  13. ZOLPIDEM [Concomitant]
     Active Substance: ZOLPIDEM TARTRATE
     Indication: Product used for unknown indication
     Dosage: UNK UNK, UNKNOWN FREQ.
     Route: 065

REACTIONS (1)
  - Somnolence [Unknown]

NARRATIVE: CASE EVENT DATE: 20100118
